FAERS Safety Report 16942190 (Version 2)
Quarter: 2019Q4

REPORT INFORMATION
  Report Type: Spontaneous
  Country: JP (occurrence: JP)
  Receive Date: 20191021
  Receipt Date: 20191226
  Transmission Date: 20200122
  Serious: Yes (Other)
  Sender: FDA-Public Use
  Company Number: JP-CELGENEUS-JPN-20191006164

PATIENT
  Age: 85 Year
  Sex: Male

DRUGS (7)
  1. LENADEX [Suspect]
     Active Substance: DEXAMETHASONE ACETATE
     Indication: PLASMA CELL MYELOMA
     Dosage: UNKNOWN
     Route: 048
     Dates: start: 201710, end: 201711
  2. REVLIMID [Suspect]
     Active Substance: LENALIDOMIDE
     Indication: PLASMA CELL MYELOMA
     Dosage: UNKNOWN
     Route: 048
     Dates: start: 201710, end: 201711
  3. LENADEX [Suspect]
     Active Substance: DEXAMETHASONE ACETATE
     Dosage: HALF DOSE
     Route: 048
     Dates: start: 201803
  4. KYPROLIS [Suspect]
     Active Substance: CARFILZOMIB
     Indication: PLASMA CELL MYELOMA
     Dosage: UNKNOWN
     Route: 041
     Dates: start: 201711, end: 201803
  5. KYPROLIS [Suspect]
     Active Substance: CARFILZOMIB
     Dosage: HALF DOSE
     Route: 041
     Dates: start: 201803
  6. REVLIMID [Suspect]
     Active Substance: LENALIDOMIDE
     Dosage: UNKNOWN
     Route: 048
     Dates: start: 201711, end: 201803
  7. LENADEX [Suspect]
     Active Substance: DEXAMETHASONE ACETATE
     Dosage: UNKNOWN
     Route: 048
     Dates: start: 201711, end: 201803

REACTIONS (2)
  - Glomerular filtration rate decreased [Recovered/Resolved]
  - N-terminal prohormone brain natriuretic peptide increased [Recovering/Resolving]

NARRATIVE: CASE EVENT DATE: 2017
